FAERS Safety Report 12070606 (Version 1)
Quarter: 2016Q1

REPORT INFORMATION
  Report Type: Spontaneous
  Country: US (occurrence: US)
  Receive Date: 20160211
  Receipt Date: 20160211
  Transmission Date: 20160526
  Serious: No
  Sender: FDA-Public Use
  Company Number: US-PFIZER INC-2016031611

PATIENT
  Sex: Male

DRUGS (1)
  1. ADVIL [Suspect]
     Active Substance: IBUPROFEN
     Indication: BACK DISORDER
     Dosage: UNK, DAILY (EVERY DAY)

REACTIONS (4)
  - Product coating issue [Unknown]
  - Foreign body [Unknown]
  - Throat irritation [Unknown]
  - Intentional product use issue [Unknown]
